FAERS Safety Report 22160919 (Version 1)
Quarter: 2023Q1

REPORT INFORMATION
  Report Type: Spontaneous
  Country: US (occurrence: None)
  Receive Date: 20230330
  Receipt Date: 20230330
  Transmission Date: 20230418
  Serious: Yes (Hospitalization)
  Sender: FDA-Public Use
  Company Number: None

PATIENT
  Age: 75 Year
  Sex: Female
  Weight: 83.01 kg

DRUGS (20)
  1. IMATINIB MESYLATE [Suspect]
     Active Substance: IMATINIB MESYLATE
     Indication: Philadelphia positive chronic myeloid leukaemia
     Dosage: FREQUENCY : DAILY;?
     Route: 048
  2. ALBUTEROL [Concomitant]
  3. ALLOPURINOL [Concomitant]
  4. AMLODIPINE [Concomitant]
  5. CYCLOBENZPRINE [Concomitant]
  6. ELIQUIS [Concomitant]
  7. FLUTICASONE [Concomitant]
  8. FUROSEMIDE [Concomitant]
  9. GABAPENTIN [Concomitant]
  10. GLIMEPIRIDE [Concomitant]
  11. INSULIN LISPRO [Concomitant]
  12. JANUVIA [Concomitant]
  13. LEVOTHYROXINE [Concomitant]
  14. LISINOPRIL [Concomitant]
  15. METOPROLOL [Concomitant]
  16. OZEMPIC [Concomitant]
  17. POTASSIUM [Concomitant]
  18. SERTRALINE [Concomitant]
  19. TRELEGY [Concomitant]
  20. TRESIBA [Concomitant]

REACTIONS (1)
  - Hospitalisation [None]
